FAERS Safety Report 21107542 (Version 1)
Quarter: 2022Q3

REPORT INFORMATION
  Report Type: Other
  Country: US (occurrence: None)
  Receive Date: 20220720
  Receipt Date: 20220720
  Transmission Date: 20221026
  Serious: Yes (Hospitalization, Other)
  Sender: FDA-Public Use
  Company Number: US-DEXPHARM-20221152

PATIENT
  Age: 29 Year
  Sex: Female

DRUGS (7)
  1. CHLORHEXIDINE [Suspect]
     Active Substance: CHLORHEXIDINE
     Route: 050
  2. POLIHEXANIDE [Suspect]
     Active Substance: POLIHEXANIDE
  3. POLYMYXIN B SULFATE\TRIMETHOPRIM [Suspect]
     Active Substance: POLYMYXIN B SULFATE\TRIMETHOPRIM
  4. MILTEFOSINE [Suspect]
     Active Substance: MILTEFOSINE
     Dosage: 50 MG THREE TIMES DAILY WITH MEALS
  5. PREDNISOLONE ACETATE [Suspect]
     Active Substance: PREDNISOLONE ACETATE
  6. PROPAMIDINE [Suspect]
     Active Substance: PROPAMIDINE
  7. POLIHEXANIDE [Suspect]
     Active Substance: POLIHEXANIDE

REACTIONS (4)
  - Condition aggravated [Recovered/Resolved]
  - Corneal infiltrates [Recovered/Resolved]
  - Nausea [Unknown]
  - Corneal perforation [Recovered/Resolved]
